FAERS Safety Report 15546681 (Version 4)
Quarter: 2018Q4

REPORT INFORMATION
  Report Type: Report from Study
  Country: JP (occurrence: JP)
  Receive Date: 20181024
  Receipt Date: 20181116
  Transmission Date: 20190205
  Serious: Yes (Hospitalization)
  Sender: FDA-Public Use
  Company Number: JP-EISAI MEDICAL RESEARCH-EC-2018-046749

PATIENT
  Age: 65 Year
  Sex: Female
  Weight: 49 kg

DRUGS (15)
  1. EVEROLIMUS. [Suspect]
     Active Substance: EVEROLIMUS
     Route: 048
     Dates: start: 20180618, end: 20180722
  2. LOPERAMIDE HYDROCHLORIDE. [Concomitant]
     Active Substance: LOPERAMIDE HYDROCHLORIDE
  3. EVEROLIMUS. [Suspect]
     Active Substance: EVEROLIMUS
     Indication: RENAL CELL CARCINOMA
     Route: 048
     Dates: start: 20180427, end: 20180530
  4. FAMOTIDINE. [Concomitant]
     Active Substance: FAMOTIDINE
  5. XALATAN [Concomitant]
     Active Substance: LATANOPROST
  6. LENVATINIB [Suspect]
     Active Substance: LENVATINIB
     Route: 048
     Dates: start: 20180912, end: 20181022
  7. CANDESARTAN. [Concomitant]
     Active Substance: CANDESARTAN
  8. LENVATINIB [Suspect]
     Active Substance: LENVATINIB
     Indication: RENAL CELL CARCINOMA
     Route: 048
     Dates: start: 20180427, end: 20180530
  9. LENVATINIB [Suspect]
     Active Substance: LENVATINIB
     Route: 048
     Dates: start: 20180618, end: 20180722
  10. LENVATINIB [Suspect]
     Active Substance: LENVATINIB
     Route: 048
     Dates: start: 20180810, end: 20180830
  11. EVEROLIMUS. [Suspect]
     Active Substance: EVEROLIMUS
     Route: 048
     Dates: start: 20180810, end: 20180830
  12. EVEROLIMUS. [Suspect]
     Active Substance: EVEROLIMUS
     Route: 048
     Dates: start: 20180912
  13. THYRADIN S [Concomitant]
     Active Substance: LEVOTHYROXINE SODIUM
  14. ZETIA [Concomitant]
     Active Substance: EZETIMIBE
  15. NIFEDIPINE CR [Concomitant]
     Active Substance: NIFEDIPINE

REACTIONS (1)
  - Diverticulitis [Recovered/Resolved]

NARRATIVE: CASE EVENT DATE: 20180930
